FAERS Safety Report 8375804-3 (Version None)
Quarter: 2012Q2

REPORT INFORMATION
  Report Type: 
  Country: None (occurrence: None)
  Receive Date: 20120518
  Receipt Date: 20120518
  Transmission Date: 20120825
  Serious: Yes (Other)
  Sender: FDA-Public Use
  Company Number: None

PATIENT
  Age: 48 Year
  Sex: Male
  Weight: 77.4 kg

DRUGS (4)
  1. NIACIN [Suspect]
     Indication: HIGH DENSITY LIPOPROTEIN DECREASED
     Dosage: 500 MG QD ORAL
     Route: 048
     Dates: start: 20120130, end: 20120226
  2. NIACIN [Suspect]
     Indication: HIV INFECTION
     Dosage: 500 MG QD ORAL
     Route: 048
     Dates: start: 20120130, end: 20120226
  3. ASPIRIN [Suspect]
     Indication: HIGH DENSITY LIPOPROTEIN DECREASED
     Dosage: 325 MG QD ORAL
     Route: 048
     Dates: start: 20120130, end: 20120301
  4. ASPIRIN [Suspect]
     Indication: HIV INFECTION
     Dosage: 325 MG QD ORAL
     Route: 048
     Dates: start: 20120130, end: 20120301

REACTIONS (1)
  - PANCREATITIS [None]
